FAERS Safety Report 23944623 (Version 1)
Quarter: 2024Q2

REPORT INFORMATION
  Report Type: Spontaneous
  Country: CN (occurrence: None)
  Receive Date: 20240606
  Receipt Date: 20240606
  Transmission Date: 20240716
  Serious: Yes (Hospitalization)
  Sender: FDA-Public Use
  Company Number: CN-ROCHE-3576293

PATIENT
  Age: 9 Year
  Sex: Male
  Weight: 46.2 kg

DRUGS (4)
  1. MABTHERA [Suspect]
     Active Substance: RITUXIMAB
     Indication: Burkitt^s lymphoma
     Route: 041
     Dates: start: 20240506, end: 20240506
  2. VINDESINE SULFATE [Suspect]
     Active Substance: VINDESINE SULFATE
     Indication: Burkitt^s lymphoma
     Route: 041
     Dates: start: 20240407, end: 20240507
  3. CYTARABINE [Suspect]
     Active Substance: CYTARABINE
     Indication: Burkitt^s lymphoma
     Route: 041
     Dates: start: 20240507, end: 20240508
  4. ETOPOSIDE [Suspect]
     Active Substance: ETOPOSIDE
     Indication: Burkitt^s lymphoma
     Route: 041
     Dates: start: 20240509, end: 20240511

REACTIONS (3)
  - Myelosuppression [Recovering/Resolving]
  - Febrile infection [Recovered/Resolved]
  - Off label use [Unknown]

NARRATIVE: CASE EVENT DATE: 20240517
